FAERS Safety Report 4519511-3 (Version None)
Quarter: 2005Q1

REPORT INFORMATION
  Report Type: 
  Country: None (occurrence: None)
  Receive Date: 20041101
  Receipt Date: 20031112
  Transmission Date: 20050727
  Serious: Yes (Other)
  Sender: FDA-Public Use
  Company Number: HQWYE145817NOV03

PATIENT
  Age: 69 Year
  Sex: Female
  Weight: 59.93 kg

DRUGS (3)
  1. PREMARIN [Suspect]
     Indication: OSTEOPOROSIS PROPHYLAXIS
     Dosage: 0.625 DAILY ALTERNATING WITH 0.3125MG DAILY, ORAL
     Route: 048
     Dates: start: 19830101
  2. PREMARIN [Suspect]
     Indication: VULVOVAGINAL DRYNESS
     Dosage: 0.625 DAILY ALTERNATING WITH 0.3125MG DAILY, ORAL
     Route: 048
     Dates: start: 19830101
  3. RANITIDINE [Concomitant]

REACTIONS (5)
  - CONDITION AGGRAVATED [None]
  - DRUG EFFECT DECREASED [None]
  - GASTROOESOPHAGEAL REFLUX DISEASE [None]
  - INCONTINENCE [None]
  - METRORRHAGIA [None]
